FAERS Safety Report 19294530 (Version 1)
Quarter: 2021Q2

REPORT INFORMATION
  Report Type: Spontaneous
  Country: US (occurrence: US)
  Receive Date: 20210524
  Receipt Date: 20210524
  Transmission Date: 20210717
  Serious: No
  Sender: FDA-Public Use
  Company Number: US-TEVA-2021-US-1908975

PATIENT
  Sex: Female

DRUGS (2)
  1. DANAZOL. [Suspect]
     Active Substance: DANAZOL
     Indication: ANAEMIA
     Route: 065
  2. BABY ASPIRIN [Concomitant]
     Active Substance: ASPIRIN

REACTIONS (4)
  - Dizziness [Unknown]
  - Feeling abnormal [Unknown]
  - Hepatic enzyme increased [Unknown]
  - Asthenia [Unknown]
